FAERS Safety Report 10313999 (Version 3)
Quarter: 2016Q4

REPORT INFORMATION
  Report Type: Report from Study
  Country: US (occurrence: US)
  Receive Date: 20140718
  Receipt Date: 20161212
  Transmission Date: 20170206
  Serious: Yes (Hospitalization, Disabling, Other)
  Sender: FDA-Public Use
  Company Number: US-SA-2014SA091862

PATIENT
  Age: 59 Year
  Sex: Female

DRUGS (14)
  1. LANTUS SOLOSTAR [Suspect]
     Active Substance: INSULIN GLARGINE
     Indication: DIABETES MELLITUS
     Dosage: DOSE:20 UNIT(S)
     Route: 058
  2. SOLOSTAR [Concomitant]
     Active Substance: DEVICE
     Indication: DIABETES MELLITUS
     Dosage: DOSE:60 UNIT(S)
     Dates: start: 20100212
  3. GABAPENTIN. [Concomitant]
     Active Substance: GABAPENTIN
     Indication: NEUROPATHY PERIPHERAL
  4. LANTUS SOLOSTAR [Suspect]
     Active Substance: INSULIN GLARGINE
     Indication: DIABETES MELLITUS
     Dosage: DOSE:60 UNIT(S)
     Route: 065
     Dates: start: 20100212
  5. NOVOLOG [Concomitant]
     Active Substance: INSULIN ASPART
  6. RAMIPRIL. [Concomitant]
     Active Substance: RAMIPRIL
     Indication: HYPERTENSION
  7. VENLAFAXINE [Concomitant]
     Active Substance: VENLAFAXINE HYDROCHLORIDE
     Indication: DEPRESSION
  8. VITAMIN D [Concomitant]
     Active Substance: CHOLECALCIFEROL
     Indication: OSTEOPOROSIS
  9. MORPHINE [Concomitant]
     Active Substance: MORPHINE
     Indication: PAIN
  10. AMLODIPINE [Concomitant]
     Active Substance: AMLODIPINE BESYLATE
     Indication: HYPERTENSION
  11. METOPROLOL. [Concomitant]
     Active Substance: METOPROLOL
     Indication: CARDIAC DISORDER
  12. SOLOSTAR [Concomitant]
     Active Substance: DEVICE
     Indication: DIABETES MELLITUS
     Dosage: DOSE:20 UNIT(S)
  13. NOVOLIN [Concomitant]
     Active Substance: INSULIN HUMAN
  14. CLINDAMYCIN. [Concomitant]
     Active Substance: CLINDAMYCIN
     Indication: CELLULITIS

REACTIONS (12)
  - Lung neoplasm malignant [Unknown]
  - Foot fracture [Unknown]
  - Cellulitis [Recovered/Resolved]
  - Weight increased [Unknown]
  - Blood glucose increased [Unknown]
  - Peripheral swelling [Unknown]
  - Dyspnoea [Unknown]
  - Surgery [Unknown]
  - Hernia [Unknown]
  - Pleural effusion [Unknown]
  - White blood cell count increased [Unknown]
  - Lymphoedema [Recovered/Resolved]

NARRATIVE: CASE EVENT DATE: 201602
